FAERS Safety Report 7003207-2 (Version None)
Quarter: 2010Q3

REPORT INFORMATION
  Report Type: 
  Country: None (occurrence: None)
  Receive Date: 20100920
  Receipt Date: 20100908
  Transmission Date: 20110219
  Serious: Yes (Hospitalization)
  Sender: FDA-Public Use
  Company Number: ES-CEPHALON-2010004651

PATIENT
  Sex: Female
  Weight: 62 kg

DRUGS (6)
  1. TREANDA [Suspect]
     Indication: EXTRANODAL MARGINAL ZONE B-CELL LYMPHOMA (MALT TYPE)
     Route: 042
     Dates: start: 20091210, end: 20100530
  2. RITUXIMAB [Suspect]
     Indication: EXTRANODAL MARGINAL ZONE B-CELL LYMPHOMA (MALT TYPE)
     Route: 042
     Dates: start: 20091210, end: 20100530
  3. NEUPOGEN [Concomitant]
     Dates: start: 20100820
  4. LEVOFLOXACIN [Concomitant]
  5. TAZOCEL [Concomitant]
  6. ENANTYUM [Concomitant]

REACTIONS (2)
  - MUCOSAL INFLAMMATION [None]
  - NEUTROPENIA [None]
